FAERS Safety Report 5273549-X (Version None)
Quarter: 2007Q1

REPORT INFORMATION
  Report Type: 
  Country: None (occurrence: None)
  Receive Date: 20070321
  Receipt Date: 20070321
  Transmission Date: 20070707
  Serious: Yes (Other)
  Sender: FDA-Public Use
  Company Number: None

PATIENT
  Sex: Male
  Weight: 88.905 kg

DRUGS (20)
  1. MAXIPIME [Suspect]
     Indication: STREPTOCOCCAL INFECTION
     Dosage: 2GM  EVERY 12 HOURS IV BOLUS
     Route: 040
     Dates: start: 20070313, end: 20070315
  2. EFFEXOR XR [Concomitant]
  3. DULCOLAX [Concomitant]
  4. VICODIN [Concomitant]
  5. TYLENOL [Concomitant]
  6. ALDACTONE [Concomitant]
  7. AMIODARONE HCL [Concomitant]
  8. MAVIK [Concomitant]
  9. MILK OF MAG [Concomitant]
  10. TYLENOL [Concomitant]
  11. RESTORIL [Concomitant]
  12. XANAX [Concomitant]
  13. AMOXICILLIN [Concomitant]
  14. BACLOFEN [Concomitant]
  15. CIPRO [Concomitant]
  16. CLONAZEPAM [Concomitant]
  17. COLACE [Concomitant]
  18. FLAGYL [Concomitant]
  19. LASIX [Concomitant]
  20. POTASSIUM CL [Concomitant]

REACTIONS (1)
  - RASH [None]
